FAERS Safety Report 23050888 (Version 1)
Quarter: 2023Q4

REPORT INFORMATION
  Report Type: Spontaneous
  Country: US (occurrence: None)
  Receive Date: 20231009
  Receipt Date: 20231009
  Transmission Date: 20240110
  Serious: Yes (Other)
  Sender: FDA-Public Use
  Company Number: None

PATIENT
  Age: 36 Year
  Sex: Male
  Weight: 75.6 kg

DRUGS (4)
  1. CABOTEGRAVIR [Suspect]
     Active Substance: CABOTEGRAVIR
     Indication: Prophylaxis against HIV infection
     Dosage: OTHER FREQUENCY : EVERY 8 WEEKS;?
     Route: 030
     Dates: start: 20230324, end: 20231005
  2. Vitamin D3 50MCG [Concomitant]
  3. LEXAPRO [Concomitant]
     Active Substance: ESCITALOPRAM OXALATE
  4. magnesium 300mg [Concomitant]

REACTIONS (1)
  - Depressive symptom [None]

NARRATIVE: CASE EVENT DATE: 20231005
